FAERS Safety Report 24291521 (Version 1)
Quarter: 2024Q3

REPORT INFORMATION
  Report Type: Spontaneous
  Country: US (occurrence: None)
  Receive Date: 20240906
  Receipt Date: 20240906
  Transmission Date: 20241017
  Serious: No
  Sender: DOMPE FARMACEUTICI
  Company Number: US-FARMAPROD-202309-2677

PATIENT
  Age: 65 Year
  Sex: Male
  Weight: 97.52 kg

DRUGS (28)
  1. OXERVATE [Suspect]
     Active Substance: CENEGERMIN-BKBJ
     Indication: Neurotrophic keratopathy
     Route: 047
     Dates: start: 20230825
  2. TETRACAINE HCL [Concomitant]
     Active Substance: TETRACAINE HYDROCHLORIDE
  3. PREDNISOLONE/BROMFENAC [Concomitant]
  4. ANORO ELLIPTA [Concomitant]
     Active Substance: UMECLIDINIUM BROMIDE\VILANTEROL TRIFENATATE
     Dosage: 62.5-25MCG BLISTER WITH DEVICE
  5. HYDROCHLOROTHIAZIDE [Concomitant]
     Active Substance: HYDROCHLOROTHIAZIDE
  6. ERGOCALCIFEROL [Concomitant]
     Active Substance: ERGOCALCIFEROL
  7. AMLODIPINE BESYLATE [Concomitant]
     Active Substance: AMLODIPINE BESYLATE
  8. TAMSULOSIN HYDROCHLORIDE [Concomitant]
     Active Substance: TAMSULOSIN HYDROCHLORIDE
  9. ESZOPICLONE [Concomitant]
     Active Substance: ESZOPICLONE
  10. DULOXETINE HYDROCHLORIDE [Concomitant]
     Active Substance: DULOXETINE HYDROCHLORIDE
  11. BUPROPION HYDROCHLORIDE [Concomitant]
     Active Substance: BUPROPION HYDROCHLORIDE
  12. BUPRENORPHINE\NALOXONE [Concomitant]
     Active Substance: BUPRENORPHINE\NALOXONE
     Dosage: 2 MG-0.5MG FILM
  13. NALOXONE HCL [Concomitant]
     Active Substance: NALOXONE HYDROCHLORIDE
  14. ALBUTEROL SULFATE [Concomitant]
     Active Substance: ALBUTEROL SULFATE
  15. PRALUENT [Concomitant]
     Active Substance: ALIROCUMAB
     Dosage: PEN INJECTOR.
  16. OZEMPIC [Concomitant]
     Active Substance: SEMAGLUTIDE
     Dosage: 0.25 OR 0.5 PEN INJECTOR
  17. NIFEDIPINE [Concomitant]
     Active Substance: NIFEDIPINE
     Dosage: 24 HOURS.
  18. ROSUVASTATIN CALCIUM [Concomitant]
     Active Substance: ROSUVASTATIN CALCIUM
  19. TESTOSTERONE CYPIONATE [Concomitant]
     Active Substance: TESTOSTERONE CYPIONATE
  20. GABAPENTIN [Concomitant]
     Active Substance: GABAPENTIN
  21. RESTASIS [Concomitant]
     Active Substance: CYCLOSPORINE
  22. HYDROCHLOROTHIAZIDE [Concomitant]
     Active Substance: HYDROCHLOROTHIAZIDE
  23. CYANOCOBALAMIN [Concomitant]
     Active Substance: CYANOCOBALAMIN
     Dosage: VIAL
  24. DEXAMETHASONE [Concomitant]
     Active Substance: DEXAMETHASONE
  25. LOSARTAN POTASSIUM [Concomitant]
     Active Substance: LOSARTAN POTASSIUM
  26. SHINGRIX [Concomitant]
     Active Substance: RECOMBINANT VARICELLA ZOSTER VIRUS (VZV) GLYCOPROTEIN E
  27. SYNTHROID [Concomitant]
     Active Substance: LEVOTHYROXINE SODIUM
  28. ALPRAZOLAM [Concomitant]
     Active Substance: ALPRAZOLAM

REACTIONS (3)
  - Eye pain [Not Recovered/Not Resolved]
  - Ocular hyperaemia [Not Recovered/Not Resolved]
  - Corneal abrasion [Not Recovered/Not Resolved]

NARRATIVE: CASE EVENT DATE: 20230831
